FAERS Safety Report 10197308 (Version 2)
Quarter: 2014Q2

REPORT INFORMATION
  Report Type: Report from Study
  Country: US (occurrence: US)
  Receive Date: 20140527
  Receipt Date: 20140527
  Transmission Date: 20141212
  Serious: Yes (Other)
  Sender: FDA-Public Use
  Company Number: PHEH2014US009354

PATIENT
  Sex: Female

DRUGS (1)
  1. GILENYA [Suspect]
     Indication: MULTIPLE SCLEROSIS
     Dosage: 0.5 MG, QD
     Route: 048
     Dates: start: 20140331

REACTIONS (5)
  - Oral pain [Recovered/Resolved]
  - Speech disorder [Recovered/Resolved]
  - Aphagia [Recovered/Resolved]
  - Weight decreased [Recovered/Resolved]
  - Throat tightness [Recovered/Resolved]
